FAERS Safety Report 18758200 (Version 1)
Quarter: 2021Q1

REPORT INFORMATION
  Report Type: Report from Study
  Country: NL (occurrence: NL)
  Receive Date: 20210119
  Receipt Date: 20210119
  Transmission Date: 20210419
  Serious: Yes (Hospitalization, Other)
  Sender: FDA-Public Use
  Company Number: NL-BRISTOL-MYERS SQUIBB COMPANY-BMS-2021-003379

PATIENT
  Age: 75 Year
  Sex: Female

DRUGS (3)
  1. CELECOXIB. [Suspect]
     Active Substance: CELECOXIB
     Indication: COLON CANCER
     Dosage: UNK
     Route: 048
     Dates: start: 20201016
  2. IPILIMUMAB [Suspect]
     Active Substance: IPILIMUMAB
     Indication: COLON CANCER
     Dosage: 1 MILLIGRAM/KILOGRAM, D1
     Route: 042
     Dates: start: 20201016, end: 20201016
  3. NIVOLUMAB [Suspect]
     Active Substance: NIVOLUMAB
     Indication: COLON CANCER
     Dosage: 3 MILLIGRAM/KILOGRAM, D1 AND D 15
     Route: 042
     Dates: start: 20201016, end: 20201030

REACTIONS (3)
  - Nausea [Unknown]
  - Vomiting [Unknown]
  - Femur fracture [Unknown]

NARRATIVE: CASE EVENT DATE: 20210101
